FAERS Safety Report 8730029 (Version 2)
Quarter: 2013Q4

REPORT INFORMATION
  Report Type: Spontaneous
  Country: US (occurrence: US)
  Receive Date: 20120817
  Receipt Date: 20131217
  Transmission Date: 20140711
  Serious: No
  Sender: FDA-Public Use
  Company Number: US-GLAXOSMITHKLINE-A0983787A

PATIENT
  Age: 68 Year
  Sex: Female

DRUGS (1)
  1. VOTRIENT [Suspect]
     Indication: THYROID CANCER
     Dosage: 800MG PER DAY
     Route: 048
     Dates: start: 20120601

REACTIONS (2)
  - Diarrhoea [Unknown]
  - Fatigue [Unknown]
